FAERS Safety Report 6296274-5 (Version None)
Quarter: 2009Q3

REPORT INFORMATION
  Report Type: 
  Country: None (occurrence: None)
  Receive Date: 20090803
  Receipt Date: 20090803
  Transmission Date: 20100115
  Serious: No
  Sender: FDA-Public Use
  Company Number: None

PATIENT
  Age: 56 Year
  Sex: Female
  Weight: 55.7924 kg

DRUGS (1)
  1. DIPRIVAN [Suspect]
     Indication: SURGERY
     Dates: start: 20090708, end: 20090708

REACTIONS (13)
  - ASTHENIA [None]
  - COUGH [None]
  - DYSPHAGIA [None]
  - DYSPNOEA [None]
  - HEADACHE [None]
  - HEART RATE INCREASED [None]
  - HYPOVENTILATION [None]
  - LUNG DISORDER [None]
  - OROPHARYNGEAL PAIN [None]
  - POST PROCEDURAL COMPLICATION [None]
  - SECRETION DISCHARGE [None]
  - SWELLING [None]
  - THROAT TIGHTNESS [None]
